FAERS Safety Report 15246014 (Version 10)
Quarter: 2019Q1

REPORT INFORMATION
  Report Type: Spontaneous
  Country: US (occurrence: US)
  Receive Date: 20180806
  Receipt Date: 20190109
  Transmission Date: 20190417
  Serious: Yes (Congenital Anomaly, Other)
  Sender: FDA-Public Use
  Company Number: PHEH2018US032312

PATIENT
  Sex: Female

DRUGS (1)
  1. ZOFRAN ODT [Suspect]
     Active Substance: ONDANSETRON HYDROCHLORIDE
     Indication: FOETAL EXPOSURE DURING PREGNANCY
     Dosage: MOTHER^S DOSE: 4 MG, Q6H, PRN
     Route: 064

REACTIONS (43)
  - Atrial septal defect [Unknown]
  - Hemihypertrophy [Unknown]
  - Neonatal respiratory distress [Unknown]
  - Low cardiac output syndrome [Unknown]
  - Poor feeding infant [Unknown]
  - Grunting [Unknown]
  - Vocal cord paresis [Unknown]
  - Pleural effusion [Unknown]
  - Cyanosis neonatal [Unknown]
  - Gastroenteritis [Unknown]
  - Hypernatraemia [Recovered/Resolved]
  - Pulmonary valve incompetence [Unknown]
  - Tricuspid valve stenosis [Unknown]
  - Pyelocaliectasis [Unknown]
  - Hypoventilation [Unknown]
  - Drooling [Unknown]
  - Atelectasis [Unknown]
  - Heart disease congenital [Unknown]
  - Enteritis [Unknown]
  - Abdominal distension [Unknown]
  - Tachypnoea [Unknown]
  - Left-to-right cardiac shunt [Unknown]
  - Foetal exposure during pregnancy [Unknown]
  - Infectious colitis [Unknown]
  - Rash [Unknown]
  - Hypoaesthesia [Unknown]
  - Right ventricular hypertension [Unknown]
  - Neonatal hypoxia [Unknown]
  - Vocal cord paralysis [Unknown]
  - Right ventricular hypertrophy [Unknown]
  - Pulmonary valve stenosis [Unknown]
  - Gross motor delay [Unknown]
  - Developmental coordination disorder [Unknown]
  - Developmental delay [Unknown]
  - Cardiac murmur [Unknown]
  - Vomiting [Unknown]
  - Congenital pulmonary valve atresia [Unknown]
  - Pulmonary artery atresia [Unknown]
  - Right atrial dilatation [Unknown]
  - Ventricular hypoplasia [Unknown]
  - Patent ductus arteriosus [Unknown]
  - Pulmonary valve disease [Unknown]
  - Cardiomegaly [Unknown]
